FAERS Safety Report 20385799 (Version 1)
Quarter: 2022Q1

REPORT INFORMATION
  Report Type: Spontaneous
  Country: US (occurrence: US)
  Receive Date: 20220127
  Receipt Date: 20220127
  Transmission Date: 20220423
  Serious: No
  Sender: FDA-Public Use
  Company Number: US-PERRIGO-21US029552

PATIENT
  Age: 65 Year
  Sex: Female
  Weight: 57.60 kg

DRUGS (2)
  1. OMEPRAZOLE [Suspect]
     Active Substance: OMEPRAZOLE
     Indication: Gastrooesophageal reflux disease
     Dosage: 20 MG, QD
     Route: 050
     Dates: start: 20210911, end: 20210927
  2. GAS-X [Concomitant]
     Active Substance: DIMETHICONE
     Indication: Flatulence
     Dosage: UNK

REACTIONS (2)
  - Condition aggravated [Recovering/Resolving]
  - Incorrect product administration duration [Recovered/Resolved]

NARRATIVE: CASE EVENT DATE: 20210901
